FAERS Safety Report 18000372 (Version 1)
Quarter: 2020Q3

REPORT INFORMATION
  Report Type: Spontaneous
  Country: JP (occurrence: JP)
  Receive Date: 20200709
  Receipt Date: 20200709
  Transmission Date: 20201103
  Serious: Yes (Hospitalization, Other)
  Sender: FDA-Public Use
  Company Number: JP-009507513-2003JPN000912J

PATIENT
  Age: 75 Year
  Sex: Male
  Weight: 61 kg

DRUGS (4)
  1. KEYTRUDA [Suspect]
     Active Substance: PEMBROLIZUMAB
     Indication: NON-SMALL CELL LUNG CANCER
     Dosage: 200 MILLIGRAM, UNK
     Route: 041
     Dates: start: 20190418, end: 20191205
  2. AZILVA [Concomitant]
     Active Substance: AZILSARTAN KAMEDOXOMIL
     Dosage: 10 MILLIGRAM,, UNK
     Route: 048
  3. NIFEDIPINE CR [Concomitant]
     Active Substance: NIFEDIPINE
     Dosage: 20 MILLIGRAM, UNK
     Route: 065
  4. NIFEDIPINE CR [Concomitant]
     Active Substance: NIFEDIPINE
     Dosage: 10 MILLIGRAM, UNK
     Route: 048

REACTIONS (4)
  - Adrenal insufficiency [Recovering/Resolving]
  - Hypopituitarism [Recovering/Resolving]
  - Immune-mediated enterocolitis [Recovered/Resolved]
  - Substance-induced psychotic disorder [Recovering/Resolving]

NARRATIVE: CASE EVENT DATE: 201912
